FAERS Safety Report 23178722 (Version 1)
Quarter: 2023Q4

REPORT INFORMATION
  Report Type: Report from Study
  Country: CA (occurrence: CA)
  Receive Date: 20231113
  Receipt Date: 20231113
  Transmission Date: 20240110
  Serious: Yes (Other)
  Sender: FDA-Public Use
  Company Number: CA-002147023-NVSC2023CA239278

PATIENT
  Age: 22 Year
  Sex: Female
  Weight: 101.4 kg

DRUGS (1)
  1. KESIMPTA [Suspect]
     Active Substance: OFATUMUMAB
     Indication: Relapsing-remitting multiple sclerosis
     Dosage: UNK UNK, QMO
     Route: 058
     Dates: start: 20221107

REACTIONS (6)
  - Intentional self-injury [Unknown]
  - Weight increased [Unknown]
  - Aggression [Unknown]
  - Tooth injury [Unknown]
  - Tooth abscess [Unknown]
  - Abnormal behaviour [Unknown]
